FAERS Safety Report 18696875 (Version 1)
Quarter: 2021Q1

REPORT INFORMATION
  Report Type: Spontaneous
  Country: US (occurrence: US)
  Receive Date: 20210104
  Receipt Date: 20210104
  Transmission Date: 20210419
  Serious: Yes (Hospitalization)
  Sender: FDA-Public Use
  Company Number: US-MYLANLABS-2020M1106456

PATIENT
  Age: 28 Year
  Sex: Female

DRUGS (1)
  1. KETAMINE [Suspect]
     Active Substance: KETAMINE
     Indication: PRODUCT USED FOR UNKNOWN INDICATION
     Dosage: UNK
     Route: 065

REACTIONS (3)
  - Cholangitis sclerosing [Recovering/Resolving]
  - Drug abuse [Recovering/Resolving]
  - Abnormal loss of weight [Unknown]
